FAERS Safety Report 7098188-X (Version None)
Quarter: 2010Q4

REPORT INFORMATION
  Report Type: 
  Country: None (occurrence: None)
  Receive Date: 20101104
  Receipt Date: 20101026
  Transmission Date: 20110411
  Serious: Yes (Other)
  Sender: FDA-Public Use
  Company Number: 2010EU005611

PATIENT
  Age: 19 Year
  Sex: Male
  Weight: 40 kg

DRUGS (19)
  1. MYCAMINE [Suspect]
     Indication: FUNGAL INFECTION
     Dosage: 100 MG, /D, IV NOS
     Route: 042
     Dates: start: 20100929, end: 20100929
  2. AZATHIOPRINE [Concomitant]
  3. CASPOFUNGIIN (CASPOFUNGIN) [Concomitant]
  4. CHLORPHENIRAMINE MALEATE [Concomitant]
  5. CITALOPRAM HYDROBROMIDE [Concomitant]
  6. CODEINE PHOSPHATE (CODEINE PHOSPHATE) [Concomitant]
  7. CYCLIZINE (CYCLIZINE) [Concomitant]
  8. IBUPROFEN [Concomitant]
  9. LOPERAMIDE [Concomitant]
  10. MORPHINE [Concomitant]
  11. MORPHINE SULFATE INJ [Concomitant]
  12. OMEPRAZOLE [Concomitant]
  13. ONDANSETRON [Concomitant]
  14. ACETAMINOPHEN [Concomitant]
  15. PREGABALIN [Concomitant]
  16. PROCHLORPERAZINE MALEATE [Concomitant]
  17. TIGECYCLINE (TIGECYCLINE) [Concomitant]
  18. VITAMIN B COMPOUND (CALCIUM PANTOTHENATE) [Concomitant]
  19. ZOPICLONE (ZOPLICONE) [Concomitant]

REACTIONS (4)
  - INJECTION SITE ERYTHEMA [None]
  - INJECTION SITE MACULE [None]
  - INJECTION SITE PALLOR [None]
  - INJECTION SITE PRURITUS [None]
